FAERS Safety Report 14319319 (Version 3)
Quarter: 2018Q1

REPORT INFORMATION
  Report Type: Spontaneous
  Country: TH (occurrence: TH)
  Receive Date: 20171222
  Receipt Date: 20180109
  Transmission Date: 20180509
  Serious: Yes (Other)
  Sender: FDA-Public Use
  Company Number: TH-PFIZER INC-2017543041

PATIENT
  Age: 57 Year
  Sex: Female

DRUGS (3)
  1. GALVUS MET [Concomitant]
     Active Substance: METFORMIN HYDROCHLORIDE\VILDAGLIPTIN
     Indication: DIABETES MELLITUS
     Dosage: 1 DF, 2X/DAY
     Route: 048
  2. COMBIZYM /00014701/ [Concomitant]
     Active Substance: PANCRELIPASE
     Dosage: UNK
  3. SUTENT [Suspect]
     Active Substance: SUNITINIB MALATE
     Indication: PRIMITIVE NEUROECTODERMAL TUMOUR
     Dosage: 25 MG (2 CAPSULES OF 12.5 MG), 1X/DAY
     Dates: start: 20171126

REACTIONS (2)
  - Platelet count decreased [Recovered/Resolved]
  - Red blood cell count decreased [Recovered/Resolved]
